FAERS Safety Report 21099474 (Version 2)
Quarter: 2022Q3

REPORT INFORMATION
  Report Type: Spontaneous
  Country: US (occurrence: US)
  Receive Date: 20220719
  Receipt Date: 20220720
  Transmission Date: 20221027
  Serious: Yes (Other)
  Sender: FDA-Public Use
  Company Number: US-PFIZER INC-202200962623

PATIENT
  Age: 78 Year
  Sex: Female

DRUGS (1)
  1. PHENYTOIN [Suspect]
     Active Substance: PHENYTOIN
     Indication: Seizure
     Dosage: 50 MG

REACTIONS (12)
  - Butterfly rash [Unknown]
  - Eyelid rash [Unknown]
  - Oral mucosal eruption [Unknown]
  - Rash macular [Unknown]
  - Drug hypersensitivity [Unknown]
  - Stomatitis [Unknown]
  - Anxiety [Unknown]
  - Asthenia [Unknown]
  - Lymphadenopathy [Unknown]
  - Swelling face [Unknown]
  - Eye swelling [Unknown]
  - Swollen tongue [Unknown]
